FAERS Safety Report 9292093 (Version 2)
Quarter: 2012Q4

REPORT INFORMATION
  Report Type: Spontaneous
  Country: US (occurrence: None)
  Receive Date: 20121005
  Receipt Date: 20121016
  Transmission Date: 20130627
  Serious: Yes (Hospitalization)
  Sender: FDA-Public Use
  Company Number: AUR-APL-2012-04205

PATIENT
  Age: 70 Year
  Sex: Male
  Weight: 79 kg

DRUGS (12)
  1. METOPROLOL (METOPROLOL) [Suspect]
     Indication: HYPERTENSION
     Route: 048
     Dates: start: 20090713
  2. METOPROLOL (METOPROLOL) [Suspect]
     Indication: HYPERTENSION
  3. CRIZOTINIB [Suspect]
     Indication: HEPATIC NEOPLASM MALIGNANT
     Route: 048
     Dates: start: 20120906, end: 20120920
  4. CRIZOTINIB [Suspect]
     Indication: HEPATIC NEOPLASM MALIGNANT
  5. ACETYLCYSTEINE (ACETYLCYSTEINE) [Concomitant]
  6. FEXOFENADINE (FEXOFENADINE) [Concomitant]
  7. LIDOCAINE PRILOCAINE (EMLA 00675501) [Concomitant]
  8. ONDANSETRON (ONDANSETRON) [Concomitant]
  9. POTASSIUM CHLORIDE (POTASSIUM CHLORIDE) [Concomitant]
  10. PROMETHAZINE (PROMETHAZINE) [Concomitant]
  11. MULTIVITAMIN (VIGRAN) [Concomitant]
  12. ZOCOR (SIMVASTATIN) [Concomitant]

REACTIONS (6)
  - Dehydration [None]
  - Hypotension [None]
  - Blood glucose increased [None]
  - Blood urea increased [None]
  - Blood sodium decreased [None]
  - Red blood cell count decreased [None]
